FAERS Safety Report 18139090 (Version 1)
Quarter: 2020Q3

REPORT INFORMATION
  Report Type: Spontaneous
  Country: US (occurrence: US)
  Receive Date: 20200812
  Receipt Date: 20200812
  Transmission Date: 20201103
  Serious: Yes (Other)
  Sender: FDA-Public Use
  Company Number: US-PFIZER INC-2020281340

PATIENT
  Age: 47 Year
  Sex: Female
  Weight: 94 kg

DRUGS (5)
  1. PROPANOLOL HCL [Interacting]
     Active Substance: PROPRANOLOL HYDROCHLORIDE
     Dosage: IMMEDIATE RELEASE (REDUCTION OF NIGHT TIME PROPRANOLOL FROM 80 MG TO 40 MG)
     Route: 048
     Dates: start: 2019, end: 201904
  2. SELEGILINE [Interacting]
     Active Substance: SELEGILINE
     Indication: MAJOR DEPRESSION
     Dosage: 12 MG, 1X/DAY, (12 MG/24 HR TRANSDERMAL PATCH)
     Route: 062
  3. PROPANOLOL HCL [Suspect]
     Active Substance: PROPRANOLOL HYDROCHLORIDE
     Indication: MIGRAINE PROPHYLAXIS
     Dosage: IMMEDIATE RELEASE
     Route: 048
     Dates: start: 201901
  4. PROPANOLOL HCL [Interacting]
     Active Substance: PROPRANOLOL HYDROCHLORIDE
     Dosage: IMMEDIATE RELEASE (REDUCTION OF NIGHT TIME PROPRANOLOL FROM 80 MG TO 40 MG)
     Route: 048
     Dates: start: 2019, end: 201904
  5. PROPANOLOL HCL [Interacting]
     Active Substance: PROPRANOLOL HYDROCHLORIDE
     Dosage: IMMEDIATE RELEASE
     Route: 048
     Dates: start: 2019

REACTIONS (4)
  - Hallucination, visual [Recovered/Resolved]
  - Illusion [Recovered/Resolved]
  - Drug interaction [Recovered/Resolved]
  - Nightmare [Recovered/Resolved]

NARRATIVE: CASE EVENT DATE: 201902
